FAERS Safety Report 7185235-X (Version None)
Quarter: 2010Q4

REPORT INFORMATION
  Report Type: 
  Country: None (occurrence: None)
  Receive Date: 20101222
  Receipt Date: 20101216
  Transmission Date: 20110411
  Serious: Yes (Hospitalization, Disabling, Other)
  Sender: FDA-Public Use
  Company Number: US-PFIZER INC-2010174696

PATIENT
  Sex: Female

DRUGS (6)
  1. LIPITOR [Suspect]
     Indication: BLOOD CHOLESTEROL
     Dosage: 40 MG, 1X/DAY
  2. ALISKIREN [Concomitant]
     Indication: BLOOD PRESSURE
     Dosage: UNK
  3. LEVOTHYROXINE SODIUM [Concomitant]
     Indication: THYROID DISORDER
     Dosage: UNK
  4. ASPIRIN [Concomitant]
     Dosage: UNK
  5. ALEVE [Concomitant]
     Dosage: FREQUENCY: AS NEEDED,
  6. MECLIZINE HYDROCHLORIDE [Concomitant]
     Indication: EAR DISORDER
     Dosage: FREQUENCY: AS NEEDED,

REACTIONS (10)
  - CARDIAC DISORDER [None]
  - DYSPNOEA [None]
  - FALL [None]
  - HIP SURGERY [None]
  - LIMB INJURY [None]
  - MUSCULAR WEAKNESS [None]
  - PAIN IN EXTREMITY [None]
  - SKELETAL INJURY [None]
  - SKIN LACERATION [None]
  - WOUND INFECTION [None]
